FAERS Safety Report 14619543 (Version 1)
Quarter: 2018Q1

REPORT INFORMATION
  Report Type: Spontaneous
  Country: GB (occurrence: GB)
  Receive Date: 20180309
  Receipt Date: 20180309
  Transmission Date: 20180509
  Serious: Yes (Hospitalization, Other)
  Sender: FDA-Public Use
  Company Number: GB-AUROBINDO-AUR-APL-2018-011945

PATIENT
  Age: 67 Year
  Sex: Female

DRUGS (4)
  1. AMLODIPINE [Concomitant]
     Active Substance: AMLODIPINE BESYLATE
     Indication: BLOOD PRESSURE MEASUREMENT
     Dosage: 5 MILLIGRAM
     Dates: start: 20110101
  2. RAMIPRIL. [Concomitant]
     Active Substance: RAMIPRIL
     Indication: BLOOD PRESSURE MEASUREMENT
     Dosage: 2.5 MILLIGRAM
     Route: 065
     Dates: start: 20110101
  3. SERTRALINE [Suspect]
     Active Substance: SERTRALINE HYDROCHLORIDE
     Indication: ANXIETY
     Dosage: 50 MILLIGRAM, DAILY
     Route: 065
     Dates: start: 20170829
  4. BISOPROLOL [Concomitant]
     Active Substance: BISOPROLOL
     Indication: BLOOD PRESSURE MEASUREMENT
     Dosage: 1.25 MILLIGRAM
     Route: 065
     Dates: start: 20110101

REACTIONS (4)
  - Food craving [Recovered/Resolved]
  - Nausea [Recovered/Resolved]
  - Weight decreased [Unknown]
  - Decreased appetite [Recovered/Resolved]

NARRATIVE: CASE EVENT DATE: 20170101
